FAERS Safety Report 18503796 (Version 2)
Quarter: 2020Q4

REPORT INFORMATION
  Report Type: Spontaneous
  Country: DE (occurrence: DE)
  Receive Date: 20201113
  Receipt Date: 20201124
  Transmission Date: 20210114
  Serious: Yes (Hospitalization)
  Sender: FDA-Public Use
  Company Number: DE-GE HEALTHCARE LIFE SCIENCES-2020CSU005638

PATIENT

DRUGS (5)
  1. NACL [Concomitant]
     Active Substance: SODIUM CHLORIDE
     Dosage: 120 ML, SINGLE
     Route: 042
     Dates: start: 20201027
  2. ACCUPAQUE [Suspect]
     Active Substance: IOHEXOL
     Indication: NEPHROLITHIASIS
  3. ACCUPAQUE [Suspect]
     Active Substance: IOHEXOL
     Indication: CHOLELITHIASIS
  4. ACCUPAQUE [Suspect]
     Active Substance: IOHEXOL
     Indication: COMPUTERISED TOMOGRAM ABDOMEN
     Dosage: 70 ML, SINGLE
     Route: 042
     Dates: start: 20201027, end: 20201027
  5. ACCUPAQUE [Suspect]
     Active Substance: IOHEXOL
     Indication: FLANK PAIN

REACTIONS (5)
  - Pruritus [Recovered/Resolved]
  - Dizziness [Recovered/Resolved]
  - Sneezing [Recovered/Resolved]
  - Urticaria [Recovered/Resolved]
  - Pustule [Recovered/Resolved]

NARRATIVE: CASE EVENT DATE: 20201027
